FAERS Safety Report 18740439 (Version 1)
Quarter: 2021Q1

REPORT INFORMATION
  Report Type: Spontaneous
  Country: IT (occurrence: IT)
  Receive Date: 20210114
  Receipt Date: 20210114
  Transmission Date: 20210419
  Serious: Yes (Other)
  Sender: FDA-Public Use
  Company Number: IT-PFIZER INC-2021019785

PATIENT
  Age: 44 Year
  Sex: Female

DRUGS (2)
  1. EPIRUBICIN HCL [Suspect]
     Active Substance: EPIRUBICIN HYDROCHLORIDE
     Indication: BREAST CANCER
     Dosage: 152 MG, CYCLIC
     Route: 042
     Dates: start: 20201207
  2. CYCLOPHOSPHAMIDE. [Suspect]
     Active Substance: CYCLOPHOSPHAMIDE
     Indication: BREAST CANCER
     Dosage: 1020 MG, CYCLIC
     Route: 042
     Dates: start: 20201207

REACTIONS (1)
  - Hypertransaminasaemia [Recovering/Resolving]

NARRATIVE: CASE EVENT DATE: 20201218
